FAERS Safety Report 7666624-3 (Version None)
Quarter: 2011Q3

REPORT INFORMATION
  Report Type: 
  Country: None (occurrence: None)
  Receive Date: 20110806
  Receipt Date: 20110331
  Transmission Date: 20111222
  Serious: No
  Sender: FDA-Public Use
  Company Number: US-ABBOTT-11P-163-0715652-00

PATIENT
  Sex: Female

DRUGS (5)
  1. UNKNOWN MEDICATION [Concomitant]
     Indication: INSOMNIA
     Dosage: AT BEDTIME
  2. UNKNOWN THYROID MEDICATION [Concomitant]
     Indication: THYROID DISORDER
  3. UNKNOWN MEDICATION [Concomitant]
     Indication: ANXIETY
  4. NIASPAN [Suspect]
     Indication: PRODUCT USED FOR UNKNOWN INDICATION
     Dates: start: 20110330
  5. UNKNOWN BLOOD PRESSURE MEDICATION [Concomitant]
     Indication: BLOOD PRESSURE

REACTIONS (3)
  - BURNING SENSATION [None]
  - FLUSHING [None]
  - ERYTHEMA [None]
